FAERS Safety Report 22345119 (Version 3)
Quarter: 2023Q2

REPORT INFORMATION
  Report Type: Report from Study
  Country: KR (occurrence: KR)
  Receive Date: 20230519
  Receipt Date: 20230606
  Transmission Date: 20230721
  Serious: Yes (Hospitalization)
  Sender: FDA-Public Use
  Company Number: KR-IPSEN Group, Research and Development-2023-10782

PATIENT

DRUGS (4)
  1. CABOZANTINIB [Suspect]
     Active Substance: CABOZANTINIB
     Indication: Renal cell carcinoma
     Dosage: 20 MG, QD
     Route: 048
     Dates: start: 20220831, end: 20230201
  2. NIVOLUMAB [Concomitant]
     Active Substance: NIVOLUMAB
     Dosage: UNK
  3. AXITINIB [Concomitant]
     Active Substance: AXITINIB
     Dosage: UNK
  4. SUNITINIB [Concomitant]
     Active Substance: SUNITINIB
     Dosage: UNK

REACTIONS (1)
  - Muscular weakness [Recovered/Resolved with Sequelae]

NARRATIVE: CASE EVENT DATE: 20230102
